FAERS Safety Report 16335820 (Version 1)
Quarter: 2019Q2

REPORT INFORMATION
  Report Type: Spontaneous
  Country: US (occurrence: US)
  Receive Date: 20190415
  Receipt Date: 20190415
  Transmission Date: 20190711
  Serious: No
  Sender: FDA-Public Use
  Company Number: None

PATIENT
  Age: 54 Year
  Sex: Male

DRUGS (1)
  1. IMATINIB 400MG TAB (X30) [Suspect]
     Active Substance: IMATINIB
     Indication: CHRONIC MYELOID LEUKAEMIA
     Route: 048
     Dates: start: 201808, end: 201903

REACTIONS (6)
  - Fluid retention [None]
  - Arthralgia [None]
  - Weight increased [None]
  - Myalgia [None]
  - Night sweats [None]
  - Fatigue [None]

NARRATIVE: CASE EVENT DATE: 20190330
